FAERS Safety Report 14633366 (Version 2)
Quarter: 2018Q2

REPORT INFORMATION
  Report Type: Spontaneous
  Country: US (occurrence: US)
  Receive Date: 20180313
  Receipt Date: 20180411
  Transmission Date: 20180711
  Serious: No
  Sender: FDA-Public Use
  Company Number: US-CELGENEUS-USA-20180303898

PATIENT
  Age: 66 Year
  Sex: Male

DRUGS (1)
  1. OTEZLA [Suspect]
     Active Substance: APREMILAST
     Indication: PSORIATIC ARTHROPATHY
     Dosage: 60 MILLIGRAM
     Route: 048
     Dates: start: 20160101

REACTIONS (5)
  - Gastrointestinal disorder [Unknown]
  - Diarrhoea [Not Recovered/Not Resolved]
  - Psoriatic arthropathy [Unknown]
  - Pain [Unknown]
  - Pruritus [Unknown]

NARRATIVE: CASE EVENT DATE: 20180309
